FAERS Safety Report 9215079 (Version 3)
Quarter: 2013Q3

REPORT INFORMATION
  Report Type: Spontaneous
  Country: US (occurrence: US)
  Receive Date: 20130405
  Receipt Date: 20130725
  Transmission Date: 20140515
  Serious: Yes (Hospitalization, Other)
  Sender: FDA-Public Use
  Company Number: US-BAYER-2013-040704

PATIENT
  Age: 50 Year
  Sex: Female

DRUGS (6)
  1. YASMIN [Suspect]
     Indication: MENORRHAGIA
     Dosage: UNK
     Dates: start: 20040514
  2. YAZ [Suspect]
  3. AMBIEN [Concomitant]
     Indication: SLEEP DISORDER
     Dosage: 5 MG, AT NIGHT PRN
  4. XANAX [Concomitant]
     Indication: ANXIETY
     Dosage: 0.125 OR 0.25 TWICE A DAY, PRN
  5. NEXIUM [Concomitant]
     Dosage: 40 MG, QD
  6. FLEXERIL [Concomitant]

REACTIONS (10)
  - Deep vein thrombosis [None]
  - Pelvic venous thrombosis [None]
  - Thrombophlebitis superficial [None]
  - Thrombosis [None]
  - Injury [None]
  - Pain [None]
  - Emotional distress [None]
  - Anxiety [None]
  - Fear [None]
  - Pain [None]
